FAERS Safety Report 16064547 (Version 1)
Quarter: 2019Q1

REPORT INFORMATION
  Report Type: Spontaneous
  Country: US (occurrence: US)
  Receive Date: 20190312
  Receipt Date: 20190312
  Transmission Date: 20190418
  Serious: Yes (Disabling, Other)
  Sender: FDA-Public Use
  Company Number: US-BAUSCH-BL-2019-006474

PATIENT
  Sex: Female
  Weight: 59.02 kg

DRUGS (5)
  1. LORAZEPAM. [Suspect]
     Active Substance: LORAZEPAM
     Indication: SCHIZOPHRENIA
     Dosage: STARTED MAYBE 5 YEARS AGO
     Route: 048
  2. SPERIDON [RISPERIDONE\TRIHEXYPHENIDYL HYDROCHLORIDE] [Suspect]
     Active Substance: RISPERIDONE\TRIHEXYPHENIDYL HYDROCHLORIDE
     Indication: PRODUCT USED FOR UNKNOWN INDICATION
     Dosage: LOW DOSE AT NIGHT
     Route: 065
  3. LORAZEPAM. [Suspect]
     Active Substance: LORAZEPAM
     Indication: PRODUCT USE IN UNAPPROVED INDICATION
  4. RISPERIDONE. [Concomitant]
     Active Substance: RISPERIDONE
     Indication: PRODUCT USED FOR UNKNOWN INDICATION
     Dosage: STARTED PROBABLY AT LEAST 3 YEARS AGO OR MAY BE LONGER
  5. COGENTIN [Suspect]
     Active Substance: BENZTROPINE MESYLATE
     Indication: PRODUCT USED FOR UNKNOWN INDICATION
     Dosage: AT NIGHT
     Route: 065

REACTIONS (11)
  - Flushing [Not Recovered/Not Resolved]
  - General physical health deterioration [Unknown]
  - Asthenia [Not Recovered/Not Resolved]
  - Motor dysfunction [Unknown]
  - Raymond-Cestan syndrome [Unknown]
  - Product use in unapproved indication [Unknown]
  - Unevaluable event [Unknown]
  - Gait disturbance [Unknown]
  - Amnesia [Unknown]
  - Fall [Unknown]
  - Confusional state [Unknown]

NARRATIVE: CASE EVENT DATE: 2018
